FAERS Safety Report 6279279-X (Version None)
Quarter: 2009Q3

REPORT INFORMATION
  Report Type: 
  Country: None (occurrence: None)
  Receive Date: 20090723
  Receipt Date: 20090309
  Transmission Date: 20100115
  Serious: Yes (Hospitalization)
  Sender: FDA-Public Use
  Company Number: US-AMGEN-KDL286783

PATIENT
  Sex: Male
  Weight: 90.7 kg

DRUGS (8)
  1. PROCRIT [Suspect]
     Indication: RENAL FAILURE CHRONIC
     Route: 058
     Dates: start: 20080403, end: 20080528
  2. FUROSEMIDE [Concomitant]
     Route: 048
     Dates: start: 20070709
  3. VERAPAMIL [Concomitant]
     Route: 048
     Dates: start: 20050101
  4. COZAAR [Concomitant]
     Route: 048
     Dates: start: 20050101
  5. LUMIGAN [Concomitant]
     Route: 047
     Dates: start: 20050101
  6. ALPHAGAN [Concomitant]
     Route: 047
     Dates: start: 20070401
  7. NIFEREX [Concomitant]
     Route: 048
     Dates: start: 20080403
  8. NYQUIL [Concomitant]
     Route: 048
     Dates: start: 20080526, end: 20080528

REACTIONS (1)
  - DEEP VEIN THROMBOSIS [None]
